FAERS Safety Report 7375705-3 (Version None)
Quarter: 2011Q1

REPORT INFORMATION
  Report Type: 
  Country: None (occurrence: None)
  Receive Date: 20110325
  Receipt Date: 20110318
  Transmission Date: 20110831
  Serious: Yes (Other)
  Sender: FDA-Public Use
  Company Number: DE-PFIZER INC-2011059923

PATIENT
  Sex: Female

DRUGS (1)
  1. AROMASIN [Suspect]
     Indication: BREAST CANCER FEMALE
     Dosage: 1X/DAY
     Dates: start: 20110211

REACTIONS (1)
  - OCULAR ICTERUS [None]
